FAERS Safety Report 16112311 (Version 5)
Quarter: 2021Q1

REPORT INFORMATION
  Report Type: Other
  Country: DE (occurrence: DE)
  Receive Date: 20190325
  Receipt Date: 20210222
  Transmission Date: 20210419
  Serious: Yes (Hospitalization, Other)
  Sender: FDA-Public Use
  Company Number: DE-ROCHE-2281263

PATIENT

DRUGS (7)
  1. BASILIXIMAB [Suspect]
     Active Substance: BASILIXIMAB
     Indication: PROPHYLAXIS AGAINST TRANSPLANT REJECTION
     Dosage: TWO DOSES OF 10 MG EACH IN PATIENTS WEIGHING {35 KG OR 20 MG EACH IN PATIENTS WEIGHING MORE THAN OR
     Route: 065
  2. EVEROLIMUS. [Suspect]
     Active Substance: EVEROLIMUS
     Indication: PROPHYLAXIS AGAINST TRANSPLANT REJECTION
     Dosage: INITIATED AT A DOSE OF 2 MG/M2/DOSE TWICE DAILY, ON THE MORNING AFTER THE LAST EVENING DOSE OF MMF,
     Route: 065
  3. PREDNISONE. [Suspect]
     Active Substance: PREDNISONE
     Indication: PROPHYLAXIS AGAINST TRANSPLANT REJECTION
     Dosage: REDUCING STEPWISE FROM 1.5 MG/KG TWICE DAILY ON DAY 1 TO 0.3 MG/KG ONCE DAILY AFTER DAY 22 AND 0.10
     Route: 065
  4. SULFAMETHOXAZOLE/TRIMETHOPRIM [Concomitant]
     Active Substance: SULFAMETHOXAZOLE\TRIMETHOPRIM
     Indication: ANTIFUNGAL PROPHYLAXIS
     Dosage: 150 MG/M2/DAY GIVEN EQUALLY DIVIDED DOSES TWICE DAILY ON AT LEAST THREE DAYS PER WEEK. THE TOTAL DAI
     Route: 048
  5. METHYLPREDNISOLONE. [Suspect]
     Active Substance: METHYLPREDNISOLONE
     Indication: PROPHYLAXIS AGAINST TRANSPLANT REJECTION
     Dosage: 10 MG/KG (300 MG/M2), WITH A TOTAL MAXIMUM DOSE OF 500 MG, WAS GIVEN ONCE ON THE DAY OF TRANSPLANT
     Route: 065
  6. TACROLIMUS. [Suspect]
     Active Substance: TACROLIMUS
     Indication: PROPHYLAXIS AGAINST TRANSPLANT REJECTION
     Dosage: TARGET TROUGH LEVEL 8?12 NG/ML UNTIL RANDOMIZATION; IN THE STAC/MMF ARM, THE TARGET TROUGH LEVEL FOR
     Route: 065
  7. MYCOPHENOLATE MOFETIL. [Suspect]
     Active Substance: MYCOPHENOLATE MOFETIL
     Indication: PROPHYLAXIS AGAINST TRANSPLANT REJECTION
     Dosage: INITIAL MAXIMUM 1200 MG/M2/DAY, REDUCED FROM WEEK 2?4 POSTTRANSPLANT TO LESS THAN OR EQUAL TO 900 MG
     Route: 065

REACTIONS (19)
  - Diarrhoea [Unknown]
  - Vomiting [Unknown]
  - BK virus infection [Unknown]
  - Urinary tract infection [Unknown]
  - Haemoglobin decreased [Unknown]
  - Cytomegalovirus infection [Unknown]
  - Infection [Unknown]
  - Polyomavirus-associated nephropathy [Unknown]
  - Neutropenia [Unknown]
  - Cytomegalovirus syndrome [Unknown]
  - Post transplant lymphoproliferative disorder [Unknown]
  - Neutrophil count decreased [Unknown]
  - Pancytopenia [Unknown]
  - Blood triglycerides increased [Unknown]
  - Epstein-Barr virus infection [Unknown]
  - Gastroenteritis [Unknown]
  - Blood creatinine increased [Unknown]
  - Pyrexia [Unknown]
  - Thrombotic microangiopathy [Unknown]
